FAERS Safety Report 5157021-3 (Version None)
Quarter: 2006Q4

REPORT INFORMATION
  Report Type: 
  Country: None (occurrence: None)
  Receive Date: 20061127
  Receipt Date: 20061010
  Transmission Date: 20070319
  Serious: Yes (Hospitalization)
  Sender: FDA-Public Use
  Company Number: FR-JNJFOC-20061002548

PATIENT
  Sex: Male

DRUGS (10)
  1. HALDOL [Suspect]
     Route: 030
  2. HALDOL [Suspect]
     Indication: PSYCHOTIC DISORDER
     Route: 030
  3. DEPAKENE [Concomitant]
     Route: 065
  4. TEGRETOL [Concomitant]
     Route: 065
  5. ZOLPIDEM TARTRATE [Concomitant]
     Route: 065
  6. LEPTICUR [Concomitant]
     Route: 065
  7. TERCIAN [Concomitant]
     Route: 065
  8. TARDYFERON [Concomitant]
     Route: 065
  9. AKINETON [Concomitant]
     Route: 065
  10. ZOLOFT [Concomitant]
     Route: 065

REACTIONS (1)
  - INAPPROPRIATE SCHEDULE OF DRUG ADMINISTRATION [None]
